FAERS Safety Report 16345500 (Version 1)
Quarter: 2019Q2

REPORT INFORMATION
  Report Type: Spontaneous
  Country: FR (occurrence: FR)
  Receive Date: 20190523
  Receipt Date: 20190523
  Transmission Date: 20190711
  Serious: Yes (Hospitalization)
  Sender: FDA-Public Use
  Company Number: FR-TEVA-2019-FR-1052383

PATIENT
  Age: 71 Year
  Sex: Male
  Weight: 76 kg

DRUGS (2)
  1. RIFAMPICINE [Suspect]
     Active Substance: RIFAMPIN
     Indication: STAPHYLOCOCCAL SEPSIS
     Dosage: 600 MILLIGRAM DAILY;
     Route: 048
     Dates: start: 20160504, end: 20160506
  2. VANCOMYCINE [Suspect]
     Active Substance: VANCOMYCIN
     Indication: STAPHYLOCOCCAL SEPSIS
     Dosage: 3 GRAM DAILY;
     Route: 042
     Dates: start: 20160426, end: 20160519

REACTIONS (2)
  - Overdose [Not Recovered/Not Resolved]
  - Renal failure [Recovering/Resolving]

NARRATIVE: CASE EVENT DATE: 20160504
